FAERS Safety Report 4819963-5 (Version None)
Quarter: 2005Q4

REPORT INFORMATION
  Report Type: 
  Country: None (occurrence: None)
  Receive Date: 20051103
  Receipt Date: 20050802
  Transmission Date: 20060501
  Serious: Yes (Hospitalization, Other)
  Sender: FDA-Public Use
  Company Number: US-MERCK-0508USA01104

PATIENT
  Age: 55 Year
  Sex: Male
  Weight: 112 kg

DRUGS (5)
  1. VIOXX [Suspect]
     Indication: ARTHRITIS
     Route: 048
     Dates: start: 20000511, end: 20041110
  2. VIOXX [Suspect]
     Indication: PAIN
     Route: 048
     Dates: start: 20000511, end: 20041110
  3. LORATADINE [Concomitant]
     Route: 065
  4. COLCHICINE [Concomitant]
     Indication: GOUT
     Route: 065
  5. ALLOPURINOL [Concomitant]
     Indication: GOUT
     Route: 065

REACTIONS (8)
  - BLINDNESS TRANSIENT [None]
  - BLOOD CHOLESTEROL INCREASED [None]
  - CARDIAC MURMUR [None]
  - CEREBROVASCULAR ACCIDENT [None]
  - DEAFNESS [None]
  - GASTROOESOPHAGEAL REFLUX DISEASE [None]
  - HYPERTENSION [None]
  - SLEEP APNOEA SYNDROME [None]
